FAERS Safety Report 7629076-5 (Version None)
Quarter: 2011Q3

REPORT INFORMATION
  Report Type: 
  Country: None (occurrence: None)
  Receive Date: 20110722
  Receipt Date: 20110722
  Transmission Date: 20111222
  Serious: Yes (Hospitalization, Other)
  Sender: FDA-Public Use
  Company Number: None

PATIENT
  Sex: Male
  Weight: 71 kg

DRUGS (1)
  1. FENTANYL-100 [Suspect]
     Dosage: 75 MCG/HR
     Route: 062

REACTIONS (4)
  - TOXICITY TO VARIOUS AGENTS [None]
  - DRUG EFFECT PROLONGED [None]
  - OVERDOSE [None]
  - MUSCLE RIGIDITY [None]
